FAERS Safety Report 5324051-8 (Version None)
Quarter: 2007Q2

REPORT INFORMATION
  Report Type: 
  Country: None (occurrence: None)
  Receive Date: 20070509
  Receipt Date: 20070509
  Transmission Date: 20071010
  Serious: Yes (Life-Threatening, Hospitalization)
  Sender: FDA-Public Use
  Company Number: None

PATIENT
  Age: 79 Year
  Sex: Male

DRUGS (22)
  1. WARFARIN SODIUM [Suspect]
     Indication: ATRIAL FIBRILLATION
     Dosage: 2.5 QD, EXCEPT 5MG M AND F
     Dates: start: 20011121, end: 20070314
  2. ENALAPRIL MALEATE [Concomitant]
  3. ALFUZOSIN HCL [Concomitant]
  4. ALLOPURINOL [Concomitant]
  5. FINASTERIDE [Concomitant]
  6. ALENDRONATE SODIUM [Concomitant]
  7. PROPRANOLOL HYDROCHLORIDE [Concomitant]
  8. CODEINE SO4 [Concomitant]
  9. FOLIC ACID [Concomitant]
  10. OXYCODONE + ACETAMINOPHEN [Concomitant]
  11. PAREGORIC [Concomitant]
  12. WARFARIN NA [Concomitant]
  13. CHLORHEXIDINE GLU. [Concomitant]
  14. TERBINAFINE HYDROCHLORIDE CREAM 1% [Concomitant]
  15. ZINC OXIDE [Concomitant]
  16. GABAPENTIN [Concomitant]
  17. MULTI-VITAMIN [Concomitant]
  18. CALCIUM/VITAMIN D [Concomitant]
  19. PRAMOXINE/HYDROCORTISONE [Concomitant]
  20. OMEPRAZOLE [Concomitant]
  21. HEMORRHOIDAL OINT [Concomitant]
  22. GLYCERIN SUPPOSITORIES [Concomitant]

REACTIONS (3)
  - BLOOD PRESSURE ORTHOSTATIC ABNORMAL [None]
  - HAEMATOCRIT DECREASED [None]
  - RECTAL HAEMORRHAGE [None]
